FAERS Safety Report 18785268 (Version 4)
Quarter: 2021Q1

REPORT INFORMATION
  Report Type: Report from Study
  Country: BE (occurrence: BE)
  Receive Date: 20210125
  Receipt Date: 20210216
  Transmission Date: 20210419
  Serious: Yes (Hospitalization)
  Sender: FDA-Public Use
  Company Number: BE-EXELIXIS-XL18421036901

PATIENT

DRUGS (12)
  1. ATEZOLIZUMAB. [Suspect]
     Active Substance: ATEZOLIZUMAB
     Indication: NON-SMALL CELL LUNG CANCER METASTATIC
     Dosage: 1200 MG, Q3WEEKS
     Route: 042
     Dates: start: 20201230
  2. PRIMABENTIS [Concomitant]
  3. OXYNORM [Concomitant]
     Active Substance: OXYCODONE HYDROCHLORIDE
     Indication: CHEST PAIN
  4. CALCIUM BICARBONATE [Concomitant]
     Active Substance: CALCIUM BICARBONATE
     Indication: METASTASES TO BONE
  5. MOUTH WASH [Concomitant]
     Indication: STOMATITIS
  6. CABOZANTINIB [Suspect]
     Active Substance: CABOZANTINIB
     Indication: NON-SMALL CELL LUNG CANCER METASTATIC
     Dosage: 40 MG, QD
     Route: 048
     Dates: start: 20201230
  7. STEOVIT FORTE [Concomitant]
     Indication: VITAMIN SUPPLEMENTATION
  8. SYNGEL [Concomitant]
     Indication: STOMATITIS
  9. ASAFLOW [Concomitant]
     Active Substance: ASPIRIN
  10. TETRALYSAL [Concomitant]
     Indication: ROSACEA
  11. XGEVA [Concomitant]
     Active Substance: DENOSUMAB
     Indication: METASTASES TO BONE
  12. LORAZEPAM. [Concomitant]
     Active Substance: LORAZEPAM
     Indication: INSOMNIA

REACTIONS (1)
  - Pyrexia [Recovered/Resolved]

NARRATIVE: CASE EVENT DATE: 20210109
